FAERS Safety Report 13369209 (Version 1)
Quarter: 2017Q1

REPORT INFORMATION
  Report Type: Spontaneous
  Country: AU (occurrence: AU)
  Receive Date: 20170324
  Receipt Date: 20170324
  Transmission Date: 20170429
  Serious: Yes (Other)
  Sender: FDA-Public Use
  Company Number: AU-ROCHE-1909885

PATIENT
  Age: 77 Year
  Sex: Female

DRUGS (4)
  1. LUCENTIS [Suspect]
     Active Substance: RANIBIZUMAB
     Indication: DIABETIC RETINAL OEDEMA
     Dosage: UNK
     Route: 065
  2. NEXIUM [Suspect]
     Active Substance: ESOMEPRAZOLE MAGNESIUM
     Indication: PRODUCT USED FOR UNKNOWN INDICATION
     Dosage: UNK
     Route: 065
  3. ASPIRIN. [Suspect]
     Active Substance: ASPIRIN
     Indication: PRODUCT USED FOR UNKNOWN INDICATION
     Dosage: UNK
     Route: 065
  4. DAONIL [Suspect]
     Active Substance: GLYBURIDE
     Indication: PRODUCT USED FOR UNKNOWN INDICATION
     Dosage: UNK
     Route: 065

REACTIONS (10)
  - Vitreous floaters [Recovering/Resolving]
  - Bone pain [Recovering/Resolving]
  - Drug hypersensitivity [Recovering/Resolving]
  - Swelling face [Recovering/Resolving]
  - Eye pruritus [Recovering/Resolving]
  - Ocular hyperaemia [Recovering/Resolving]
  - Contusion [Recovering/Resolving]
  - Headache [Recovering/Resolving]
  - Eye pain [Recovering/Resolving]
  - Vision blurred [Recovering/Resolving]
